FAERS Safety Report 18197761 (Version 4)
Quarter: 2020Q3

REPORT INFORMATION
  Report Type: Spontaneous
  Country: US (occurrence: US)
  Receive Date: 20200826
  Receipt Date: 20200924
  Transmission Date: 20201103
  Serious: No
  Sender: FDA-Public Use
  Company Number: US-PFIZER INC-2020329674

PATIENT
  Age: 62 Year
  Sex: Female

DRUGS (1)
  1. LYRICA [Suspect]
     Active Substance: PREGABALIN
     Dosage: 100 MG

REACTIONS (6)
  - Feeling abnormal [Unknown]
  - Incorrect dose administered [Unknown]
  - Pain in extremity [Unknown]
  - Product dispensing error [Unknown]
  - Pain [Unknown]
  - Illness [Unknown]
